FAERS Safety Report 18335154 (Version 1)
Quarter: 2020Q4

REPORT INFORMATION
  Report Type: Spontaneous
  Country: US (occurrence: US)
  Receive Date: 20201001
  Receipt Date: 20201001
  Transmission Date: 20210113
  Serious: No
  Sender: FDA-Public Use
  Company Number: US-ADAREPHARM-2020-US-000031

PATIENT
  Age: 50 Year
  Sex: Female
  Weight: 61.5 kg

DRUGS (4)
  1. MAGNESIUM SUPPLEMENT [Concomitant]
     Active Substance: MAGNESIUM
     Dosage: FURTHER DETAILS NOT OBTAINED
  2. KCL [Suspect]
     Active Substance: POTASSIUM CHLORIDE
     Indication: BLOOD POTASSIUM DECREASED
     Dosage: TWICE DAILY, IN THE MORNING WITH BREAKFAST AND IN THE EVENING WITH DINNER
     Dates: start: 20200306
  3. ACYCLOVIR. [Concomitant]
     Active Substance: ACYCLOVIR
  4. VITAMIN D2 [Concomitant]
     Active Substance: ERGOCALCIFEROL

REACTIONS (4)
  - Lymphadenopathy [Not Recovered/Not Resolved]
  - Dysphagia [Not Recovered/Not Resolved]
  - Pruritus [Not Recovered/Not Resolved]
  - Rash [Not Recovered/Not Resolved]

NARRATIVE: CASE EVENT DATE: 20200308
